FAERS Safety Report 18878266 (Version 1)
Quarter: 2021Q1

REPORT INFORMATION
  Report Type: Report from Study
  Country: US (occurrence: US)
  Receive Date: 20210211
  Receipt Date: 20210211
  Transmission Date: 20210420
  Serious: Yes (Hospitalization, Other)
  Sender: FDA-Public Use
  Company Number: US-GILEAD-2021-0516180

PATIENT
  Age: 3 Year
  Sex: Female

DRUGS (2)
  1. PULMOZYME [Concomitant]
     Active Substance: DORNASE ALFA
  2. AZTREONAM LYSINE [Suspect]
     Active Substance: AZTREONAM LYSINE
     Indication: PRODUCT USED FOR UNKNOWN INDICATION
     Dosage: RECONSTITUE WITH 1ML SUPPLIED DILUENT, TID, EVERY OTHER DAY
     Route: 055
     Dates: start: 202004

REACTIONS (3)
  - Lower respiratory tract infection fungal [Unknown]
  - Escherichia infection [Unknown]
  - Off label use [Not Recovered/Not Resolved]
